FAERS Safety Report 10072190 (Version 1)
Quarter: 2014Q2

REPORT INFORMATION
  Report Type: Spontaneous
  Country: US (occurrence: None)
  Receive Date: 20140410
  Receipt Date: 20140410
  Transmission Date: 20141212
  Serious: Yes (Life-Threatening)
  Sender: FDA-Public Use
  Company Number: None

PATIENT
  Age: 70 Year
  Sex: Female

DRUGS (11)
  1. AXITINIB [Suspect]
     Route: 048
  2. CELEXA 20MG FOREST LABORATORIES/ MEIJER#205 [Concomitant]
  3. TRICOR 145MG [Concomitant]
  4. LISINOPRIL 5 MG [Concomitant]
  5. METFORMIN 500MG [Concomitant]
  6. LOPRESSOR 100MG [Concomitant]
  7. RESTORIL [Concomitant]
  8. NORVASC 5 MG [Concomitant]
  9. AXITINIB 5MG [Concomitant]
  10. HYDRALAZINE 25MG HYDROCHLORIDE TAB [Concomitant]
  11. OXYCONTIN 20MG [Concomitant]

REACTIONS (4)
  - Unresponsive to stimuli [None]
  - Hypoxia [None]
  - Posterior reversible encephalopathy syndrome [None]
  - Convulsion [None]
